FAERS Safety Report 18577873 (Version 2)
Quarter: 2020Q4

REPORT INFORMATION
  Report Type: Report from Study
  Country: CN (occurrence: CN)
  Receive Date: 20201204
  Receipt Date: 20201214
  Transmission Date: 20210114
  Serious: Yes (Hospitalization)
  Sender: FDA-Public Use
  Company Number: CN-ROCHE-2722606

PATIENT
  Age: 60 Year
  Sex: Female
  Weight: 65 kg

DRUGS (14)
  1. TRASTUZUMAB. [Suspect]
     Active Substance: TRASTUZUMAB
     Indication: BREAST CANCER METASTATIC
     Dosage: (8-MILLIGRAMS PER KILOGRAM [MG/KG] LOADING DOSE FOR CYCLE 1 (AS PER PROTOCOL)
     Route: 041
     Dates: start: 20170516
  2. XUE SAI TONG RUAN JIAO NANG [Concomitant]
     Indication: HYPERTENSION
     Dates: start: 20170816
  3. ATORVASTATIN CALCIUM. [Concomitant]
     Active Substance: ATORVASTATIN CALCIUM
     Dates: start: 20191220
  4. PERTUZUMAB. [Suspect]
     Active Substance: PERTUZUMAB
     Indication: BREAST CANCER METASTATIC
     Dosage: LOADING DOSE
     Route: 042
     Dates: start: 20200925
  5. FEBUXOSTAT. [Concomitant]
     Active Substance: FEBUXOSTAT
     Dates: start: 20190812
  6. POLYETHYLENE GLYCOL ELECTROLYTES [Concomitant]
     Dosage: INDICATION PURGATION BEFORE SURGERY
     Dates: start: 20201109, end: 20201109
  7. DOCETAXEL. [Suspect]
     Active Substance: DOCETAXEL
     Indication: BREAST CANCER METASTATIC
     Dosage: ON 03/NOV/2017 RECEIVED MOST RECENT DOSE (378 MG) OF DOCETAXEL PRIOR TO SAE ONSET.
     Route: 042
     Dates: start: 20170516
  8. DIMETHICONE. [Concomitant]
     Active Substance: DIMETHICONE
     Dosage: INDICATION PURGATION BEFORE SURGERY
     Dates: start: 20201109, end: 20201109
  9. PERTUZUMAB. [Suspect]
     Active Substance: PERTUZUMAB
     Dosage: MAINTENANCE DOSE?ON 05/NOV/2020 RECEIVED MOST RECENT DOSE OF PERTUZUMAB PRIOR TO SAE ONSET
     Route: 042
  10. ALPHACALCIDOL [Concomitant]
     Active Substance: ALFACALCIDOL
     Dates: start: 20180323
  11. LOSARTAN POTASSIUM AND HYDROCHLOROTHIAZIDE [Concomitant]
     Active Substance: HYDROCHLOROTHIAZIDE\LOSARTAN POTASSIUM
     Indication: HYPERTENSION
     Dates: start: 20181017
  12. BLINDED PERTUZUMAB [Suspect]
     Active Substance: PERTUZUMAB
     Dosage: MAINTENANCE DOSE
     Route: 042
  13. TRASTUZUMAB. [Suspect]
     Active Substance: TRASTUZUMAB
     Dosage: FOLLOWED BY 6 MG/KG FOR SUBSEQUENT CYCLES ( MAINTENANCE DOSE) (AS PER PROTOCOL)?ON 05/NOV/2020 RECEI
     Route: 042
  14. BLINDED PERTUZUMAB [Suspect]
     Active Substance: PERTUZUMAB
     Indication: BREAST CANCER METASTATIC
     Dosage: LOADING DOSE
     Route: 042
     Dates: start: 20170516

REACTIONS (2)
  - Peripheral arterial occlusive disease [Not Recovered/Not Resolved]
  - Large intestine polyp [Recovered/Resolved]

NARRATIVE: CASE EVENT DATE: 20201029
